FAERS Safety Report 14488276 (Version 2)
Quarter: 2018Q1

REPORT INFORMATION
  Report Type: Spontaneous
  Country: IE (occurrence: IE)
  Receive Date: 20180205
  Receipt Date: 20180220
  Transmission Date: 20180509
  Serious: Yes (Other)
  Sender: FDA-Public Use
  Company Number: IE-PFIZER INC-2018047010

PATIENT
  Age: 18 Year
  Sex: Female

DRUGS (1)
  1. CABERGOLINE. [Suspect]
     Active Substance: CABERGOLINE
     Dosage: 500 UG, UNK (THREE TIMES A WEEK)
     Dates: start: 201708, end: 201801

REACTIONS (5)
  - Chest pain [Unknown]
  - Loss of consciousness [Unknown]
  - Constipation [Recovered/Resolved]
  - Anxiety [Unknown]
  - Dizziness postural [Unknown]
